FAERS Safety Report 22960068 (Version 3)
Quarter: 2023Q4

REPORT INFORMATION
  Report Type: Spontaneous
  Country: CA (occurrence: CA)
  Receive Date: 20230920
  Receipt Date: 20231016
  Transmission Date: 20240110
  Serious: Yes (Other)
  Sender: FDA-Public Use
  Company Number: CA-TAKEDA-2023TUS089969

PATIENT
  Age: 1 Year
  Sex: Male
  Weight: 14 kg

DRUGS (14)
  1. ADYNOVATE [Suspect]
     Active Substance: ANTIHEMOPHILIC FACTOR, HUMAN RECOMBINANT
     Indication: Head injury
     Dosage: UNK
     Route: 065
     Dates: start: 20220627
  2. ADYNOVATE [Suspect]
     Active Substance: ANTIHEMOPHILIC FACTOR, HUMAN RECOMBINANT
     Indication: Head injury
     Dosage: UNK
     Route: 065
     Dates: start: 20220627
  3. ADYNOVATE [Suspect]
     Active Substance: ANTIHEMOPHILIC FACTOR, HUMAN RECOMBINANT
     Indication: Head injury
     Dosage: UNK
     Route: 065
     Dates: start: 20220627
  4. ADYNOVATE [Suspect]
     Active Substance: ANTIHEMOPHILIC FACTOR, HUMAN RECOMBINANT
     Dosage: UNK UNK, SINGLE
     Route: 042
     Dates: start: 20230828, end: 20230828
  5. ADYNOVATE [Suspect]
     Active Substance: ANTIHEMOPHILIC FACTOR, HUMAN RECOMBINANT
     Dosage: UNK UNK, SINGLE
     Route: 042
     Dates: start: 20230828, end: 20230828
  6. ADYNOVATE [Suspect]
     Active Substance: ANTIHEMOPHILIC FACTOR, HUMAN RECOMBINANT
     Dosage: UNK UNK, SINGLE
     Route: 042
     Dates: start: 20230828, end: 20230828
  7. ADYNOVATE [Suspect]
     Active Substance: ANTIHEMOPHILIC FACTOR, HUMAN RECOMBINANT
     Dosage: UNK UNK, SINGLE
     Route: 042
     Dates: start: 20230828, end: 20230828
  8. ADYNOVATE [Suspect]
     Active Substance: ANTIHEMOPHILIC FACTOR, HUMAN RECOMBINANT
     Dosage: UNK UNK, SINGLE
     Route: 042
     Dates: start: 20230828, end: 20230828
  9. ADYNOVATE [Suspect]
     Active Substance: ANTIHEMOPHILIC FACTOR, HUMAN RECOMBINANT
     Dosage: UNK UNK, SINGLE
     Route: 042
     Dates: start: 20230828, end: 20230828
  10. ADYNOVATE [Suspect]
     Active Substance: ANTIHEMOPHILIC FACTOR, HUMAN RECOMBINANT
     Dosage: 1000 INTERNATIONAL UNIT, SINGLE
     Route: 042
     Dates: start: 20230828, end: 20230828
  11. ADYNOVATE [Suspect]
     Active Substance: ANTIHEMOPHILIC FACTOR, HUMAN RECOMBINANT
     Dosage: 1000 INTERNATIONAL UNIT, SINGLE
     Route: 042
     Dates: start: 20230828, end: 20230828
  12. ADYNOVATE [Suspect]
     Active Substance: ANTIHEMOPHILIC FACTOR, HUMAN RECOMBINANT
     Dosage: 1000 INTERNATIONAL UNIT, SINGLE
     Route: 042
     Dates: start: 20230828, end: 20230828
  13. WILATE - VON WILLEBRAND FACTOR/COAGULATION FACTOR VIII COMPLEX (HUMAN) [Concomitant]
     Active Substance: HUMAN COAGULATION FACTOR VIII/VON WILLEBRAND FACTOR COMPLEX
     Indication: Product used for unknown indication
     Dosage: 500 INTERNATIONAL UNIT, SINGLE
     Route: 065
     Dates: start: 20220202
  14. WILATE - VON WILLEBRAND FACTOR/COAGULATION FACTOR VIII COMPLEX (HUMAN) [Concomitant]
     Active Substance: HUMAN COAGULATION FACTOR VIII/VON WILLEBRAND FACTOR COMPLEX
     Dosage: UNK UNK, SINGLE
     Route: 065
     Dates: start: 20230828

REACTIONS (7)
  - Vomiting [Recovered/Resolved]
  - Loss of consciousness [Recovered/Resolved]
  - Unresponsive to stimuli [Recovered/Resolved]
  - Somnolence [Recovered/Resolved]
  - Petechiae [Recovered/Resolved]
  - Fall [Recovered/Resolved]
  - Haemorrhage [Unknown]

NARRATIVE: CASE EVENT DATE: 20230828
